FAERS Safety Report 9098826 (Version 3)
Quarter: 2013Q2

REPORT INFORMATION
  Report Type: Report from Study
  Country: US (occurrence: US)
  Receive Date: 20130213
  Receipt Date: 20130419
  Transmission Date: 20140414
  Serious: Yes (Other)
  Sender: FDA-Public Use
  Company Number: US-ABBOTT-13P-163-1046247-00

PATIENT
  Age: 63 Year
  Sex: Female
  Weight: 76.73 kg

DRUGS (1)
  1. HUMIRA [Suspect]
     Indication: COLITIS ULCERATIVE
     Dates: start: 20121113, end: 20130122

REACTIONS (9)
  - Arteriovenous malformation [Unknown]
  - Arteriovenous malformation [Unknown]
  - Abdominal discomfort [Unknown]
  - Feeling abnormal [Unknown]
  - Asthenia [Unknown]
  - Influenza [Unknown]
  - Pyrexia [Unknown]
  - Oropharyngeal pain [Unknown]
  - Cough [Unknown]
